FAERS Safety Report 5972944-0 (Version None)
Quarter: 2008Q4

REPORT INFORMATION
  Report Type: 
  Country: None (occurrence: None)
  Receive Date: 20081201
  Receipt Date: 20081120
  Transmission Date: 20090506
  Serious: Yes (Other)
  Sender: FDA-Public Use
  Company Number: PHHY2008FR29298

PATIENT
  Age: 80 Year
  Sex: Female

DRUGS (2)
  1. ACLASTA [Suspect]
     Dosage: UNK
     Route: 058
     Dates: start: 20081119
  2. MORPHINE [Concomitant]

REACTIONS (3)
  - ABDOMINAL PAIN [None]
  - INCORRECT ROUTE OF DRUG ADMINISTRATION [None]
  - INFLAMMATION [None]
